FAERS Safety Report 10432735 (Version 1)
Quarter: 2014Q3

REPORT INFORMATION
  Report Type: Spontaneous
  Country: SG (occurrence: None)
  Receive Date: 20140903
  Receipt Date: 20140903
  Transmission Date: 20150326
  Serious: Yes (Hospitalization, Other)
  Sender: FDA-Public Use
  Company Number: 2014JUB00103

PATIENT
  Age: 77 Year
  Sex: Female

DRUGS (1)
  1. ALENDRONATE (ALENDRONATE)UNKNOWN [Suspect]
     Active Substance: ALENDRONATE SODIUM
     Indication: OSTEOPOROSIS
     Dates: start: 2004, end: 2013

REACTIONS (3)
  - Medical device removal [None]
  - Stress fracture [None]
  - Ulna fracture [None]

NARRATIVE: CASE EVENT DATE: 2013
